FAERS Safety Report 15096379 (Version 2)
Quarter: 2018Q3

REPORT INFORMATION
  Report Type: Spontaneous
  Country: US (occurrence: US)
  Receive Date: 20180702
  Receipt Date: 20180703
  Transmission Date: 20181010
  Serious: No
  Sender: FDA-Public Use
  Company Number: US-PFIZER INC-2018264151

PATIENT
  Age: 60 Year
  Sex: Female
  Weight: 58.97 kg

DRUGS (7)
  1. SULFACETAMIDE. [Concomitant]
     Active Substance: SULFACETAMIDE
     Indication: SEBORRHOEIC DERMATITIS
     Dosage: UNK UNK, 2X/DAY
     Route: 061
  2. LOPRAX [Concomitant]
     Indication: SEBORRHOEIC DERMATITIS
     Dosage: UNK, 2X/DAY (APPLY TO SKIN AREAS AS PRESCRIBED BY THE DOCTOR)
  3. BIOTIN [Concomitant]
     Active Substance: BIOTIN
     Indication: SUPPLEMENTATION THERAPY
     Dosage: 2500 UG, 1X/DAY
     Route: 048
  4. EUCRISA [Suspect]
     Active Substance: CRISABOROLE
     Indication: ECZEMA
     Dosage: UNK, 2X/DAY (APPLY TO AREAS ON FACE AS DIRECTED BY DOCTOR)
     Dates: start: 20180628
  5. VITAMIN C [Concomitant]
     Active Substance: ASCORBIC ACID
     Indication: SUPPLEMENTATION THERAPY
     Dosage: 500 MG, 1X/DAY
     Route: 048
  6. SULFACETAMIDE. [Concomitant]
     Active Substance: SULFACETAMIDE
     Dosage: UNK, 1X/DAY (APPLY TO SKIN AREAS AS PRESCRIBED BY THE DOCTOR)
  7. EUCRISA [Suspect]
     Active Substance: CRISABOROLE
     Indication: SEBORRHOEIC DERMATITIS

REACTIONS (2)
  - Pain of skin [Recovered/Resolved]
  - Skin exfoliation [Not Recovered/Not Resolved]

NARRATIVE: CASE EVENT DATE: 20180628
